FAERS Safety Report 4703925-2 (Version None)
Quarter: 2005Q2

REPORT INFORMATION
  Report Type: 
  Country: None (occurrence: None)
  Receive Date: 20050628
  Receipt Date: 20050513
  Transmission Date: 20051028
  Serious: Yes (Hospitalization)
  Sender: FDA-Public Use
  Company Number: 2005BI009588

PATIENT
  Age: 49 Year
  Sex: Female

DRUGS (8)
  1. AVONEX [Suspect]
     Indication: MULTIPLE SCLEROSIS
     Dosage: 30 UG; QW; IM
     Route: 030
     Dates: start: 20040607
  2. CELEXA [Concomitant]
  3. AMANTIDINE [Concomitant]
  4. DITROPAN [Concomitant]
  5. ZANAFLEX [Concomitant]
  6. WELLBUTRIN [Concomitant]
  7. ASPIRIN [Concomitant]
  8. MULTI-VITAMIN [Concomitant]

REACTIONS (3)
  - BRONCHITIS [None]
  - CYSTITIS [None]
  - PNEUMONIA ASPIRATION [None]
